FAERS Safety Report 8765560 (Version 1)
Quarter: 2012Q4

REPORT INFORMATION
  Report Type: 
  Country: NL (occurrence: NL)
  Receive Date: 20120902
  Receipt Date: 20120902
  Transmission Date: 20130627
  Serious: Yes (Death)
  Sender: FDA-Public Use
  Company Number: PHHY2012NL075589

PATIENT
  Age: 79 Year
  Sex: Female

DRUGS (2)
  1. ZOMETA [Suspect]
     Indication: BREAST CANCER METASTATIC
     Dosage: 4mg/100ml once per 42 days
     Dates: start: 20111221
  2. ZOMETA [Suspect]
     Dosage: 4mg/100ml once per 42 days
     Dates: start: 20120201

REACTIONS (1)
  - Death [Fatal]
